FAERS Safety Report 8276650-1 (Version None)
Quarter: 2012Q2

REPORT INFORMATION
  Report Type: 
  Country: None (occurrence: None)
  Receive Date: 20120412
  Receipt Date: 20120404
  Transmission Date: 20120825
  Serious: Yes (Hospitalization, Other)
  Sender: FDA-Public Use
  Company Number: US-BAYER-2012-016726

PATIENT
  Sex: Female

DRUGS (3)
  1. YAZ [Suspect]
     Indication: PRODUCT USED FOR UNKNOWN INDICATION
     Dosage: UNK
     Dates: start: 20061201
  2. BENADRYL [Concomitant]
     Indication: ABSCESS
     Dosage: UNK
     Dates: start: 20061012
  3. BACTRIM [Concomitant]
     Indication: ABSCESS
     Dosage: UNK
     Dates: start: 20061012

REACTIONS (4)
  - THROMBOSIS [None]
  - INJURY [None]
  - DEEP VEIN THROMBOSIS [None]
  - PELVIC PAIN [None]
